FAERS Safety Report 25956690 (Version 2)
Quarter: 2025Q4

REPORT INFORMATION
  Report Type: Report from Study
  Country: JP (occurrence: JP)
  Receive Date: 20251024
  Receipt Date: 20251031
  Transmission Date: 20260117
  Serious: Yes (Hospitalization)
  Sender: EISAI
  Company Number: JP-Eisai-EC-2025-198481

PATIENT

DRUGS (2)
  1. LEQEMBI [Suspect]
     Active Substance: LECANEMAB-IRMB
     Indication: Dementia Alzheimer^s type
     Dosage: DOSE AND FREQUENCY UNKNOWN
     Route: 042
  2. LEQEMBI [Suspect]
     Active Substance: LECANEMAB-IRMB
     Dosage: DOSE AND FREQUENCY UNKNOWN
     Route: 042

REACTIONS (1)
  - Gastrointestinal disorder [Not Recovered/Not Resolved]

NARRATIVE: CASE EVENT DATE: 20250701
